FAERS Safety Report 4572566-2 (Version None)
Quarter: 2005Q1

REPORT INFORMATION
  Report Type: 
  Country: None (occurrence: None)
  Receive Date: 20050208
  Receipt Date: 20050127
  Transmission Date: 20050727
  Serious: Yes (Hospitalization, Other)
  Sender: FDA-Public Use
  Company Number: US-JNJFOC-20050103406

PATIENT
  Sex: Female

DRUGS (16)
  1. INFLIXIMAB [Suspect]
     Route: 042
  2. INFLIXIMAB [Suspect]
     Route: 042
  3. INFLIXIMAB [Suspect]
     Indication: RHEUMATOID ARTHRITIS
     Dosage: TOTAL OF 17 INFUSION.
     Route: 042
  4. ALBUTEROL [Concomitant]
  5. CELEBREX [Concomitant]
  6. FOLIC ACID [Concomitant]
  7. HYDROCHLOROTHIAZIDE [Concomitant]
  8. LOTREL [Concomitant]
  9. LOTREL [Concomitant]
  10. METHOTREXATE [Concomitant]
  11. PREDNISONE [Concomitant]
  12. PRILOSEC [Concomitant]
  13. ACTONEL [Concomitant]
  14. NASONEX [Concomitant]
  15. CLARINEX [Concomitant]
  16. HUMALOG [Concomitant]

REACTIONS (1)
  - EXTRANODAL MARGINAL ZONE B-CELL LYMPHOMA (MALT TYPE) [None]
